FAERS Safety Report 4664800-5 (Version None)
Quarter: 2005Q2

REPORT INFORMATION
  Report Type: 
  Country: None (occurrence: None)
  Receive Date: 20050516
  Receipt Date: 20050428
  Transmission Date: 20051028
  Serious: Yes (Hospitalization)
  Sender: FDA-Public Use
  Company Number: DSA_26367_2005

PATIENT
  Age: 58 Year
  Sex: Female

DRUGS (3)
  1. LORAZEPAM [Suspect]
     Dates: start: 20050424, end: 20050424
  2. RISPERDAL [Suspect]
     Dates: start: 20050424, end: 20050424
  3. TAXILAN [Suspect]
     Dates: start: 20050424, end: 20050424

REACTIONS (3)
  - INTENTIONAL MISUSE [None]
  - SALIVARY HYPERSECRETION [None]
  - SOMNOLENCE [None]
